FAERS Safety Report 14251047 (Version 2)
Quarter: 2018Q1

REPORT INFORMATION
  Report Type: Report from Study
  Country: US (occurrence: US)
  Receive Date: 20171205
  Receipt Date: 20180117
  Transmission Date: 20180508
  Serious: Yes (Other)
  Sender: FDA-Public Use
  Company Number: PHEH2017US038553

PATIENT
  Age: 58 Year
  Sex: Female

DRUGS (1)
  1. GILENYA [Suspect]
     Active Substance: FINGOLIMOD HYDROCHLORIDE
     Indication: MULTIPLE SCLEROSIS
     Dosage: 0.5 MG, QD
     Route: 048
     Dates: start: 20170520

REACTIONS (6)
  - Tooth fracture [Unknown]
  - Fall [Recovered/Resolved]
  - Hypoaesthesia [Not Recovered/Not Resolved]
  - Balance disorder [Unknown]
  - Wrist fracture [Recovered/Resolved]
  - Sensory loss [Unknown]

NARRATIVE: CASE EVENT DATE: 20170923
